FAERS Safety Report 21800901 (Version 1)
Quarter: 2022Q4

REPORT INFORMATION
  Report Type: Report from Study
  Country: US (occurrence: US)
  Receive Date: 20221230
  Receipt Date: 20221230
  Transmission Date: 20230113
  Serious: No
  Sender: FDA-Public Use
  Company Number: US-ABBVIE-4221074

PATIENT
  Sex: Male

DRUGS (5)
  1. HUMIRA [Suspect]
     Active Substance: ADALIMUMAB
     Indication: Psoriasis
     Route: 058
  2. HUMIRA [Suspect]
     Active Substance: ADALIMUMAB
     Indication: Crohn^s disease
  3. Moderna [Concomitant]
     Indication: COVID-19 immunisation
     Dosage: ONE IN ONCE, FIRST DOSE
     Route: 030
     Dates: start: 20210115, end: 20210115
  4. Moderna [Concomitant]
     Indication: COVID-19 immunisation
     Dosage: ONE IN ONCE, SECOND DOSE
     Route: 030
     Dates: start: 20210209, end: 20210209
  5. Moderna [Concomitant]
     Indication: COVID-19 immunisation
     Dosage: ONE IN ONCE, BOOSTER DOSE
     Route: 030
     Dates: start: 20220707, end: 20220707

REACTIONS (1)
  - Weight increased [Unknown]

NARRATIVE: CASE EVENT DATE: 20220101
